FAERS Safety Report 7402647-7 (Version None)
Quarter: 2011Q2

REPORT INFORMATION
  Report Type: 
  Country: None (occurrence: None)
  Receive Date: 20110408
  Receipt Date: 20110405
  Transmission Date: 20111010
  Serious: No
  Sender: FDA-Public Use
  Company Number: US-PFIZER INC-2011056102

PATIENT
  Sex: Female
  Weight: 42.63 kg

DRUGS (3)
  1. PREMARIN [Suspect]
     Indication: OFF LABEL USE
  2. PREMARIN [Suspect]
     Indication: HORMONE REPLACEMENT THERAPY
     Dosage: 2 MG, UNK
     Route: 067
     Dates: start: 20110311
  3. PREMARIN [Suspect]
     Indication: URINARY TRACT INFECTION

REACTIONS (3)
  - BURNING SENSATION [None]
  - INCORRECT DOSE ADMINISTERED [None]
  - VULVOVAGINAL BURNING SENSATION [None]
